FAERS Safety Report 6947809-8 (Version None)
Quarter: 2010Q3

REPORT INFORMATION
  Report Type: 
  Country: None (occurrence: None)
  Receive Date: 20100828
  Receipt Date: 20091002
  Transmission Date: 20110219
  Serious: No
  Sender: FDA-Public Use
  Company Number: US-ABBOTT-09P-163-0601024-00

PATIENT
  Sex: Male
  Weight: 100.79 kg

DRUGS (10)
  1. NIASPAN [Suspect]
     Indication: BLOOD CHOLESTEROL INCREASED
     Dates: start: 20090601
  2. NIASPAN [Suspect]
     Indication: BLOOD TRIGLYCERIDES INCREASED
  3. DYNACERT [Concomitant]
     Indication: HYPERTENSION
  4. BENICAR [Concomitant]
     Indication: PRODUCT USED FOR UNKNOWN INDICATION
  5. GLIPIZIDE [Concomitant]
     Indication: DIABETES MELLITUS
  6. HERBAL SUPPLEMENTS [Concomitant]
     Indication: DIABETES MELLITUS
  7. FISH OIL [Concomitant]
     Indication: MEDICAL DIET
  8. CINNAMON BARK [Concomitant]
     Indication: PHYTOTHERAPY
  9. ASPIRIN [Concomitant]
     Indication: PRODUCT USED FOR UNKNOWN INDICATION
  10. PLAVIX [Concomitant]
     Indication: PRODUCT USED FOR UNKNOWN INDICATION

REACTIONS (3)
  - AGITATION [None]
  - FEELING ABNORMAL [None]
  - THINKING ABNORMAL [None]
